FAERS Safety Report 22529040 (Version 1)
Quarter: 2023Q2

REPORT INFORMATION
  Report Type: Report from Study
  Country: CA (occurrence: CA)
  Receive Date: 20230607
  Receipt Date: 20230607
  Transmission Date: 20230722
  Serious: Yes (Other)
  Sender: FDA-Public Use
  Company Number: CA-JNJFOC-20230572139

PATIENT
  Age: 16 Year
  Sex: Female
  Weight: 81 kg

DRUGS (1)
  1. REMICADE [Suspect]
     Active Substance: INFLIXIMAB
     Indication: Crohn^s disease
     Dosage: TREATMENT ALSO GIVEN ON 23-DEC-2021
     Route: 041
     Dates: start: 20210223

REACTIONS (4)
  - Blood iron decreased [Unknown]
  - Nasopharyngitis [Recovered/Resolved]
  - Ocular hyperaemia [Recovering/Resolving]
  - Malaise [Unknown]

NARRATIVE: CASE EVENT DATE: 20230501
